FAERS Safety Report 6489575-9 (Version None)
Quarter: 2009Q4

REPORT INFORMATION
  Report Type: 
  Country: None (occurrence: None)
  Receive Date: 20091210
  Receipt Date: 20091126
  Transmission Date: 20100525
  Serious: Yes (Other)
  Sender: FDA-Public Use
  Company Number: US-GENENTECH-294839

PATIENT

DRUGS (5)
  1. RITUXIMAB [Suspect]
     Indication: MANTLE CELL LYMPHOMA
     Dosage: FORM: INFUSION; FREQUENCY: ON DAY 1 OF A 21 DAY CYCLE
     Route: 042
  2. GEMCITABINE [Suspect]
     Indication: MANTLE CELL LYMPHOMA
     Dosage: FORM: INFUSION; FREQUENCY: OVER 30-60 MIN ON DAY 1 AND 8
     Route: 042
  3. MITOXANTRONE [Suspect]
     Indication: MANTLE CELL LYMPHOMA
     Dosage: FORM: INFUSION; FREQUENCY: OVER 5-10 MIN ON DAY 1
     Route: 042
  4. ACETAMINOPHEN [Concomitant]
     Indication: DRUG USE FOR UNKNOWN INDICATION
     Dosage: 650 MG, UNK
  5. DIPHENHYDRAMINE HCL [Concomitant]
     Dosage: 50 MG, UNK

REACTIONS (11)
  - ABDOMINAL PAIN [None]
  - ANAEMIA [None]
  - ASTHENIA [None]
  - CONVULSION [None]
  - DYSPNOEA [None]
  - HYPERSENSITIVITY [None]
  - HYPOCALCAEMIA [None]
  - LEUKOPENIA [None]
  - NEUTROPENIA [None]
  - PNEUMONIA [None]
  - THROMBOCYTOPENIA [None]
